FAERS Safety Report 5435767-7 (Version None)
Quarter: 2007Q3

REPORT INFORMATION
  Report Type: 
  Country: None (occurrence: None)
  Receive Date: 20070831
  Receipt Date: 20070830
  Transmission Date: 20080115
  Serious: Yes (Other)
  Sender: FDA-Public Use
  Company Number: A0672995A

PATIENT
  Sex: Female

DRUGS (1)
  1. ALLI [Suspect]

REACTIONS (3)
  - CONSTIPATION [None]
  - INFREQUENT BOWEL MOVEMENTS [None]
  - MENSTRUATION DELAYED [None]
